FAERS Safety Report 5201239-8 (Version None)
Quarter: 2007Q1

REPORT INFORMATION
  Report Type: 
  Country: None (occurrence: None)
  Receive Date: 20070103
  Receipt Date: 20061218
  Transmission Date: 20070707
  Serious: Yes (Life-Threatening, Hospitalization)
  Sender: FDA-Public Use
  Company Number: DSA_29044_2006

PATIENT
  Age: 82 Year
  Sex: Male

DRUGS (9)
  1. RENIVACE [Suspect]
     Indication: HYPERTENSION
     Dosage: 1.25 MG BID PO
     Route: 048
     Dates: start: 20061108, end: 20061109
  2. PLETAL [Suspect]
     Indication: STENT PLACEMENT
     Dosage: 100 MGB ID PO
     Route: 048
     Dates: start: 20061108, end: 20061110
  3. IOMERON-150 [Suspect]
     Indication: ARTERIOGRAM
     Dosage: 295 ML QD IV
     Route: 042
     Dates: start: 20061108, end: 20061108
  4. NITOROL [Suspect]
     Indication: ANGINA PECTORIS
     Dosage: DF QD IV
     Route: 042
     Dates: start: 20061107, end: 20061110
  5. PANALDINE [Concomitant]
  6. ASPIRIN [Concomitant]
  7. AMLODIPINE BESYLATE [Concomitant]
  8. TAMBOCOR [Concomitant]
  9. NU-LOTAN [Concomitant]

REACTIONS (5)
  - PHARYNGEAL OEDEMA [None]
  - RESPIRATORY DISORDER [None]
  - RESPIRATORY DISTRESS [None]
  - SNORING [None]
  - STRIDOR [None]
